FAERS Safety Report 13748050 (Version 2)
Quarter: 2017Q3

REPORT INFORMATION
  Report Type: Report from Study
  Country: US (occurrence: US)
  Receive Date: 20170713
  Receipt Date: 20170831
  Transmission Date: 20171127
  Serious: Yes (Hospitalization, Other)
  Sender: FDA-Public Use
  Company Number: US-GILEAD-2017-0282703

PATIENT
  Age: 67 Year
  Sex: Female

DRUGS (2)
  1. AMBRISENTAN [Suspect]
     Active Substance: AMBRISENTAN
     Indication: PRODUCT USED FOR UNKNOWN INDICATION
     Dosage: 10 MG, QD
     Route: 065
     Dates: start: 20130114
  2. COUMADIN [Concomitant]
     Active Substance: WARFARIN SODIUM

REACTIONS (8)
  - Clostridium difficile infection [Unknown]
  - Confusional state [Not Recovered/Not Resolved]
  - Urine abnormality [Unknown]
  - Blood urine present [Unknown]
  - Urinary tract infection [Not Recovered/Not Resolved]
  - Atrial fibrillation [Unknown]
  - Respiratory disorder [Unknown]
  - Disorientation [Not Recovered/Not Resolved]
